FAERS Safety Report 24731901 (Version 2)
Quarter: 2024Q4

REPORT INFORMATION
  Report Type: Spontaneous
  Country: CA (occurrence: CA)
  Receive Date: 20241213
  Receipt Date: 20241218
  Transmission Date: 20250115
  Serious: Yes (Hospitalization, Other)
  Sender: PFIZER
  Company Number: CA-PFIZER INC-202400321362

PATIENT
  Age: 75 Year
  Sex: Male

DRUGS (1)
  1. ABRILADA [Suspect]
     Active Substance: ADALIMUMAB-AFZB
     Indication: Crohn^s disease
     Dosage: 160MG WEEK 0, 80MG WEEK 2, THEN 40MG EVERY OTHER WEEK
     Route: 058
     Dates: start: 20240911

REACTIONS (1)
  - Bacterial sepsis [Unknown]

NARRATIVE: CASE EVENT DATE: 20240101
